FAERS Safety Report 14923871 (Version 1)
Quarter: 2018Q2

REPORT INFORMATION
  Report Type: Spontaneous
  Country: IE (occurrence: IE)
  Receive Date: 20180522
  Receipt Date: 20180522
  Transmission Date: 20180711
  Serious: Yes (Life-Threatening, Hospitalization, Other)
  Sender: FDA-Public Use
  Company Number: IE-ABBVIE-18K-229-2363427-00

PATIENT
  Age: 54 Year
  Sex: Male
  Weight: 80 kg

DRUGS (2)
  1. HUMIRA [Suspect]
     Active Substance: ADALIMUMAB
     Indication: CROHN^S DISEASE
     Route: 058
     Dates: start: 20160515, end: 20180101
  2. BUDESONIDE. [Concomitant]
     Active Substance: BUDESONIDE
     Indication: CROHN^S DISEASE
     Dates: start: 20110101, end: 20180101

REACTIONS (4)
  - Tuberculoma of central nervous system [Not Recovered/Not Resolved]
  - Immune reconstitution inflammatory syndrome associated tuberculosis [Not Recovered/Not Resolved]
  - Brain oedema [Not Recovered/Not Resolved]
  - Disseminated tuberculosis [Not Recovered/Not Resolved]

NARRATIVE: CASE EVENT DATE: 20180114
